FAERS Safety Report 11636217 (Version 4)
Quarter: 2016Q1

REPORT INFORMATION
  Report Type: Spontaneous
  Country: US (occurrence: US)
  Receive Date: 20151016
  Receipt Date: 20160114
  Transmission Date: 20160525
  Serious: Yes (Life-Threatening, Hospitalization, Disabling, Other)
  Sender: FDA-Public Use
  Company Number: US-BAYER-2015-441382

PATIENT
  Age: 37 Year
  Sex: Female
  Weight: 88.44 kg

DRUGS (6)
  1. MIRENA [Suspect]
     Active Substance: LEVONORGESTREL
     Indication: MENORRHAGIA
     Dosage: 20 MCG/24HR, CONT
     Route: 015
     Dates: start: 20060207, end: 20151026
  2. MIRENA [Suspect]
     Active Substance: LEVONORGESTREL
     Indication: DYSMENORRHOEA
  3. TRINESSA [Concomitant]
     Active Substance: ETHINYL ESTRADIOL\NORGESTIMATE
  4. PYRIDIUM [Concomitant]
     Active Substance: PHENAZOPYRIDINE
  5. MELOXICAM. [Concomitant]
     Active Substance: MELOXICAM
  6. MIRENA [Suspect]
     Active Substance: LEVONORGESTREL
     Indication: DYSFUNCTIONAL UTERINE BLEEDING

REACTIONS (31)
  - Dysfunctional uterine bleeding [None]
  - Cholecystectomy [None]
  - Lupus-like syndrome [None]
  - Paraesthesia [None]
  - Uterine perforation [None]
  - Balance disorder [None]
  - Mood swings [Not Recovered/Not Resolved]
  - Acne [None]
  - Palpitations [None]
  - Anxiety [None]
  - Migraine [None]
  - Bacterial infection [None]
  - Urinary tract infection [None]
  - Chemical poisoning [None]
  - Device issue [None]
  - Anhedonia [None]
  - Pelvic pain [None]
  - Fungal infection [None]
  - Abdominal pain lower [None]
  - Device use error [None]
  - Emotional distress [None]
  - Night blindness [None]
  - Alopecia [None]
  - Gastrooesophageal reflux disease [None]
  - Abdominal discomfort [None]
  - General physical health deterioration [None]
  - Injury [None]
  - Device difficult to use [None]
  - Depression [Not Recovered/Not Resolved]
  - Teeth brittle [None]
  - Vaginal infection [None]

NARRATIVE: CASE EVENT DATE: 200606
